FAERS Safety Report 4883747-2 (Version None)
Quarter: 2006Q1

REPORT INFORMATION
  Report Type: 
  Country: None (occurrence: None)
  Receive Date: 20060113
  Receipt Date: 20051229
  Transmission Date: 20060701
  Serious: Yes (Hospitalization)
  Sender: FDA-Public Use
  Company Number: 6019532

PATIENT
  Age: 53 Year
  Sex: Female

DRUGS (3)
  1. LEVOTHYROXINE SODIUM [Suspect]
     Indication: HYPOTHYROIDISM
     Dosage: 75 MCG (75 MCG, 1 D), ORAL
     Route: 048
  2. INTRONA (INJECTION) (INTERFERON ALFA) [Suspect]
     Indication: HAEMATOPOIETIC NEOPLASM
     Dosage: 9 MU (3 MU) 3 IN 1 WK), SUBCUTANEOUS
     Route: 058
  3. ASPEGIC (250 MG, POWDER FOR ORAL SOLUTION) (ACETYLSALICYLIC ACID) [Suspect]
     Dosage: 250 MG (250 MG, 1 IN 1 D), ORAL
     Route: 048

REACTIONS (1)
  - MYOCARDIAL INFARCTION [None]
